FAERS Safety Report 20779128 (Version 2)
Quarter: 2022Q2

REPORT INFORMATION
  Report Type: Spontaneous
  Country: CA (occurrence: CA)
  Receive Date: 20220503
  Receipt Date: 20220630
  Transmission Date: 20220721
  Serious: Yes (Death, Other)
  Sender: FDA-Public Use
  Company Number: CA-PFIZER INC-202101547967

PATIENT
  Age: 15 Year
  Sex: Female
  Weight: 34.3 kg

DRUGS (3)
  1. REVATIO [Suspect]
     Active Substance: SILDENAFIL CITRATE
     Indication: Pulmonary hypertension
     Dosage: 20 MG, 4X/DAY
     Route: 048
     Dates: start: 2008
  2. REVATIO [Suspect]
     Active Substance: SILDENAFIL CITRATE
     Indication: Heart disease congenital
  3. REVATIO [Suspect]
     Active Substance: SILDENAFIL CITRATE
     Indication: Fontan procedure

REACTIONS (4)
  - Cardiac failure [Fatal]
  - Condition aggravated [Fatal]
  - Off label use [Unknown]
  - Off label use [Unknown]

NARRATIVE: CASE EVENT DATE: 20080101
